FAERS Safety Report 18629895 (Version 1)
Quarter: 2020Q4

REPORT INFORMATION
  Report Type: Spontaneous
  Country: US (occurrence: US)
  Receive Date: 20201217
  Receipt Date: 20201217
  Transmission Date: 20210114
  Serious: No
  Sender: FDA-Public Use
  Company Number: US-SCILEX PHARMACEUTICALS INC.-2020SCX00035

PATIENT
  Sex: Male

DRUGS (1)
  1. ZTLIDO [Suspect]
     Active Substance: LIDOCAINE

REACTIONS (1)
  - Pruritus [Unknown]
